FAERS Safety Report 24880909 (Version 1)
Quarter: 2025Q1

REPORT INFORMATION
  Report Type: Spontaneous
  Country: US (occurrence: US)
  Receive Date: 20250124
  Receipt Date: 20250124
  Transmission Date: 20250409
  Serious: Yes (Hospitalization, Other)
  Sender: AMGEN
  Company Number: US-AMGEN-USASP2025008303

PATIENT
  Age: 46 Year
  Sex: Female

DRUGS (1)
  1. ADALIMUMAB [Suspect]
     Active Substance: ADALIMUMAB
     Indication: Hidradenitis
     Route: 065

REACTIONS (5)
  - Pyoderma gangrenosum [Recovering/Resolving]
  - Sepsis [Recovering/Resolving]
  - Hidradenitis [Recovering/Resolving]
  - Interleukin level increased [Recovering/Resolving]
  - Psoriasis [Recovering/Resolving]
